FAERS Safety Report 7700552-X (Version None)
Quarter: 2011Q3

REPORT INFORMATION
  Report Type: 
  Country: None (occurrence: None)
  Receive Date: 20110822
  Receipt Date: 20110815
  Transmission Date: 20111222
  Serious: Yes (Other)
  Sender: FDA-Public Use
  Company Number: US-JNJFOC-20110603445

PATIENT
  Sex: Female

DRUGS (9)
  1. LEVAQUIN [Suspect]
     Route: 048
  2. LEVAQUIN [Suspect]
     Route: 048
  3. PREDNISONE [Suspect]
     Indication: INFLAMMATION
     Route: 065
  4. LEVAQUIN [Suspect]
     Indication: SINUSITIS
     Route: 048
     Dates: start: 20090401, end: 20090501
  5. DEXAMETHASONE [Suspect]
     Indication: INFLAMMATION
     Route: 065
  6. LEVAQUIN [Suspect]
     Indication: WOUND INFECTION
     Route: 048
     Dates: start: 20090401, end: 20090501
  7. LEVAQUIN [Suspect]
     Route: 048
  8. CIPROFLOXACIN [Suspect]
     Indication: INFECTION
     Route: 048
  9. LEVAQUIN [Suspect]
     Indication: TOOTH INFECTION
     Route: 048
     Dates: start: 20090401, end: 20090501

REACTIONS (3)
  - TENOSYNOVITIS STENOSANS [None]
  - TENDON RUPTURE [None]
  - ROTATOR CUFF SYNDROME [None]
